FAERS Safety Report 7363810-7 (Version None)
Quarter: 2011Q1

REPORT INFORMATION
  Report Type: 
  Country: None (occurrence: None)
  Receive Date: 20110225
  Receipt Date: 20110106
  Transmission Date: 20110831
  Serious: No
  Sender: FDA-Public Use
  Company Number: 321269

PATIENT
  Age: 51 Year
  Sex: Female

DRUGS (1)
  1. VICTOZA [Suspect]
     Indication: TYPE 2 DIABETES MELLITUS
     Dosage: 1.2 MG, QD, SUBCUTANEOUS
     Route: 058

REACTIONS (6)
  - DYSPEPSIA [None]
  - BLOOD GLUCOSE DECREASED [None]
  - FLATULENCE [None]
  - DECREASED APPETITE [None]
  - WEIGHT DECREASED [None]
  - ABDOMINAL PAIN UPPER [None]
